FAERS Safety Report 6052814-2 (Version None)
Quarter: 2009Q1

REPORT INFORMATION
  Report Type: 
  Country: None (occurrence: None)
  Receive Date: 20090122
  Receipt Date: 20090108
  Transmission Date: 20090719
  Serious: Yes (Death)
  Sender: FDA-Public Use
  Company Number: KV200800072

PATIENT
  Age: 59 Year
  Sex: Female
  Weight: 86.2 kg

DRUGS (9)
  1. MORPHINE SULFATE [Suspect]
     Indication: INTERVERTEBRAL DISC DEGENERATION
     Dosage: 60 MG, 1 TABLET, TID, ORAL
     Route: 048
     Dates: start: 20080101, end: 20080504
  2. MORPHINE SULFATE [Suspect]
     Indication: OSTEOARTHRITIS
     Dosage: 60 MG, 1 TABLET, TID, ORAL
     Route: 048
     Dates: start: 20080101, end: 20080504
  3. VICODIN [Concomitant]
  4. ADVAIR DISKUS 100/50 [Concomitant]
  5. SPIRIVA [Concomitant]
  6. CYMBALTA [Concomitant]
  7. GABAPENTIN [Concomitant]
  8. LEVOTHYROXINE SODIUM [Concomitant]
  9. NEXIUM [Concomitant]

REACTIONS (11)
  - ACUTE MYOCARDIAL INFARCTION [None]
  - CHRONIC OBSTRUCTIVE PULMONARY DISEASE [None]
  - CONFUSIONAL STATE [None]
  - DEPRESSED LEVEL OF CONSCIOUSNESS [None]
  - FALL [None]
  - HALLUCINATION [None]
  - LETHARGY [None]
  - MALAISE [None]
  - PRODUCT QUALITY ISSUE [None]
  - TREMOR [None]
  - URINARY INCONTINENCE [None]
